FAERS Safety Report 8820365 (Version 1)
Quarter: 2012Q4

REPORT INFORMATION
  Report Type: 
  Country: CA (occurrence: CA)
  Receive Date: 20121002
  Receipt Date: 20121002
  Transmission Date: 20130627
  Serious: Yes (Death, Other)
  Sender: FDA-Public Use
  Company Number: CA-ROXANE LABORATORIES, INC.-2012-RO-01923RO

PATIENT
  Age: 36 Year
  Sex: Female

DRUGS (3)
  1. PREDNISONE [Suspect]
     Indication: LUNG TRANSPLANT
  2. AZATHIOPRINE [Suspect]
     Indication: LUNG TRANSPLANT
  3. TACROLIMUS [Suspect]
     Indication: LUNG TRANSPLANT

REACTIONS (5)
  - Bacteraemia [Fatal]
  - Sinusitis [Fatal]
  - Otitis media [Unknown]
  - Mastoiditis [Unknown]
  - Petrositis [Unknown]
